FAERS Safety Report 5709634-5 (Version None)
Quarter: 2008Q2

REPORT INFORMATION
  Report Type: 
  Country: None (occurrence: None)
  Receive Date: 20080418
  Receipt Date: 20080416
  Transmission Date: 20081010
  Serious: Yes (Hospitalization)
  Sender: FDA-Public Use
  Company Number: B0516288A

PATIENT
  Age: 41 Year
  Sex: Female
  Weight: 70 kg

DRUGS (4)
  1. LAPATINIB [Suspect]
     Indication: BREAST CANCER
     Dosage: 1000MG PER DAY
     Route: 048
     Dates: start: 20080213
  2. TRASTUZUMAB [Suspect]
     Indication: BREAST CANCER
     Route: 042
     Dates: start: 20080213
  3. TAMOXIFEN [Suspect]
     Indication: BREAST CANCER
     Dosage: 20MG PER DAY
     Dates: start: 20080320, end: 20080328
  4. OMEPRAZOLE [Concomitant]
     Indication: GASTRIC ULCER
     Dosage: 20MG PER DAY
     Dates: start: 20070917

REACTIONS (2)
  - RASH ERYTHEMATOUS [None]
  - URTICARIA [None]
